FAERS Safety Report 14297260 (Version 2)
Quarter: 2017Q4

REPORT INFORMATION
  Report Type: Spontaneous
  Country: US (occurrence: US)
  Receive Date: 20171218
  Receipt Date: 20171228
  Transmission Date: 20180321
  Serious: Yes (Hospitalization, Other)
  Sender: FDA-Public Use
  Company Number: US-PFIZER INC-2017530538

PATIENT
  Age: 5 Week
  Sex: Female
  Weight: 4.82 kg

DRUGS (6)
  1. VINBLASTINE [Suspect]
     Active Substance: VINBLASTINE
     Indication: LEIOMYOMA
     Dosage: UNK, CYCLIC (INITIAL DAILY AND WEEKLY CHEMOTHERAPY)
  2. METHOTREXATE SODIUM. [Suspect]
     Active Substance: METHOTREXATE SODIUM
     Dosage: UNK, CYCLIC (EVERY 2 WEEKS FOR THE LAST 8 MONTHS)
  3. HYDROCODONE [Concomitant]
     Active Substance: HYDROCODONE
     Indication: PAIN
     Dosage: UNK, AS NEEDED
  4. METHOTREXATE SODIUM. [Suspect]
     Active Substance: METHOTREXATE SODIUM
     Indication: LEIOMYOMA
     Dosage: UNK UNK, CYCLIC (INITIAL DAILY AND WEEKLY CHEMOTHERAPY)
  5. VINBLASTINE [Suspect]
     Active Substance: VINBLASTINE
     Dosage: UNK, CYCLIC (EVERY 2 WEEKS FOR THE LAST 8 MONTHS)
  6. ACETAMINOPHEN. [Concomitant]
     Active Substance: ACETAMINOPHEN
     Indication: PAIN
     Dosage: UNK, AS NEEDED

REACTIONS (2)
  - Febrile neutropenia [Unknown]
  - Mucosal inflammation [Unknown]
